FAERS Safety Report 18242812 (Version 3)
Quarter: 2020Q4

REPORT INFORMATION
  Report Type: Spontaneous
  Country: US (occurrence: US)
  Receive Date: 20200908
  Receipt Date: 20201012
  Transmission Date: 20210113
  Serious: Yes (Other)
  Sender: FDA-Public Use
  Company Number: US-HARMONY BIOSCIENCES-2020HMY01151

PATIENT
  Age: 38 Year
  Sex: Female
  Weight: 68.03 kg

DRUGS (15)
  1. MIRALAX [Concomitant]
     Active Substance: POLYETHYLENE GLYCOL 3350
  2. ORILISSA [Concomitant]
     Active Substance: ELAGOLIX SODIUM
  3. TOPIRAMATE. [Concomitant]
     Active Substance: TOPIRAMATE
  4. ADDERALL [Concomitant]
     Active Substance: AMPHETAMINE ASPARTATE\AMPHETAMINE SULFATE\DEXTROAMPHETAMINE SACCHARATE\DEXTROAMPHETAMINE SULFATE
  5. BREO ELLIPTA [Concomitant]
     Active Substance: FLUTICASONE FUROATE\VILANTEROL TRIFENATATE
  6. WAKIX [Suspect]
     Active Substance: PITOLISANT HYDROCHLORIDE
     Dosage: 8.9 MG, 1X/DAY IN THE AM
     Route: 048
     Dates: start: 202007, end: 20200804
  7. CYCLOBENZAPRINE. [Concomitant]
     Active Substance: CYCLOBENZAPRINE
  8. RANITIDINE. [Concomitant]
     Active Substance: RANITIDINE
  9. VENTOLIN [Concomitant]
     Active Substance: ALBUTEROL SULFATE
  10. WAKIX [Suspect]
     Active Substance: PITOLISANT HYDROCHLORIDE
     Indication: NARCOLEPSY
     Dosage: 8.9 MG, 1X/DAY IN THE AM
     Route: 048
     Dates: start: 202006, end: 202007
  11. WAKIX [Suspect]
     Active Substance: PITOLISANT HYDROCHLORIDE
     Indication: NARCOLEPSY
     Dosage: 17.8 MG
     Route: 048
     Dates: start: 202007, end: 202007
  12. UNSPECIFIED BIRTH CONTROL [Suspect]
     Active Substance: UNSPECIFIED INGREDIENT
  13. MELOXICAM. [Concomitant]
     Active Substance: MELOXICAM
  14. SINGULAIR [Concomitant]
     Active Substance: MONTELUKAST SODIUM
  15. SUMATRIPTAN. [Concomitant]
     Active Substance: SUMATRIPTAN

REACTIONS (8)
  - Heart rate increased [Unknown]
  - Malaise [Unknown]
  - Hypertension [Unknown]
  - Discomfort [Unknown]
  - Drug interaction [Unknown]
  - Abdominal pain [Unknown]
  - Nausea [Unknown]
  - Abdominal distension [Unknown]

NARRATIVE: CASE EVENT DATE: 2020
